FAERS Safety Report 9947318 (Version 1)
Quarter: 2014Q1

REPORT INFORMATION
  Report Type: Report from Study
  Country: US (occurrence: US)
  Receive Date: 20140303
  Receipt Date: 20140303
  Transmission Date: 20141002
  Serious: No
  Sender: FDA-Public Use
  Company Number: US-ABBVIE-13P-163-1058882-00

PATIENT
  Age: 58 Year
  Sex: Male

DRUGS (4)
  1. FOLIC ACID [Concomitant]
     Indication: VITAMIN SUPPLEMENTATION
     Dosage: 1 MG DAILY
  2. HUMIRA [Suspect]
     Indication: CROHN^S DISEASE
     Dates: start: 20130127
  3. METHOTREXATE [Concomitant]
     Indication: COLITIS ULCERATIVE
     Dosage: 1.5 MG 6 PILLS ONCE A WEEK
  4. BALSALAZIDE [Concomitant]
     Indication: COLITIS ULCERATIVE
     Dosage: 750MG X 3 THRICE A DAY = 6750MG

REACTIONS (4)
  - Stomatitis [Unknown]
  - Nasopharyngitis [Not Recovered/Not Resolved]
  - Oral disorder [Unknown]
  - Dry mouth [Unknown]
